FAERS Safety Report 20792410 (Version 3)
Quarter: 2022Q2

REPORT INFORMATION
  Report Type: Spontaneous
  Country: CO (occurrence: CO)
  Receive Date: 20220506
  Receipt Date: 20220630
  Transmission Date: 20220720
  Serious: Yes (Disabling, Other)
  Sender: FDA-Public Use
  Company Number: CO-PFIZER INC-202200445602

PATIENT
  Age: 45 Year
  Sex: Male

DRUGS (1)
  1. ENBREL [Suspect]
     Active Substance: ETANERCEPT
     Indication: Rheumatoid arthritis
     Dosage: 50 MILLIGRAM
     Route: 058

REACTIONS (5)
  - Gait inability [Unknown]
  - Inflammation [Unknown]
  - Arthralgia [Unknown]
  - Pain [Unknown]
  - Tonsillitis [Unknown]

NARRATIVE: CASE EVENT DATE: 20220510
